FAERS Safety Report 9850980 (Version 1)
Quarter: 2014Q1

REPORT INFORMATION
  Report Type: Spontaneous
  Country: US (occurrence: US)
  Receive Date: 20140128
  Receipt Date: 20140128
  Transmission Date: 20141002
  Serious: No
  Sender: FDA-Public Use
  Company Number: US-BRACCO-010207

PATIENT
  Sex: 0

DRUGS (1)
  1. CARDIOGEN-82 [Suspect]
     Indication: DIAGNOSTIC PROCEDURE

REACTIONS (2)
  - Intercepted medication error [Unknown]
  - No adverse event [Unknown]
